FAERS Safety Report 23113709 (Version 1)
Quarter: 2023Q4

REPORT INFORMATION
  Report Type: Spontaneous
  Country: US (occurrence: US)
  Receive Date: 20231027
  Receipt Date: 20231027
  Transmission Date: 20240109
  Serious: Yes (Death)
  Sender: FDA-Public Use
  Company Number: US-JNJFOC-20231055683

PATIENT
  Age: 14 Year
  Sex: Female

DRUGS (1)
  1. DIPHENHYDRAMINE HYDROCHLORIDE [Suspect]
     Active Substance: DIPHENHYDRAMINE HYDROCHLORIDE
     Indication: Product used for unknown indication
     Route: 065

REACTIONS (10)
  - Brain death [Fatal]
  - Toxicity to various agents [Fatal]
  - Bradycardia [Fatal]
  - Bradypnoea [Fatal]
  - Coma [Fatal]
  - Depressed level of consciousness [Fatal]
  - Metabolic acidosis [Fatal]
  - Respiratory depression [Fatal]
  - Seizure [Fatal]
  - Leukocytosis [Fatal]
